FAERS Safety Report 10235394 (Version 2)
Quarter: 2014Q2

REPORT INFORMATION
  Report Type: Spontaneous
  Country: US (occurrence: US)
  Receive Date: 20140613
  Receipt Date: 20140630
  Transmission Date: 20141212
  Serious: No
  Sender: FDA-Public Use
  Company Number: US-PFIZER INC-2014161445

PATIENT
  Age: 61 Year
  Sex: Male
  Weight: 140.59 kg

DRUGS (3)
  1. VIAGRA [Suspect]
     Indication: ERECTILE DYSFUNCTION
     Dosage: 100 MG, AS NEEDED
  2. ZOLPIDEM [Concomitant]
     Indication: SLEEP DISORDER
     Dosage: 10 MG, DAILY
  3. RANITIDINE [Concomitant]
     Indication: GASTROOESOPHAGEAL REFLUX DISEASE
     Dosage: 150 MG, 2X/DAY

REACTIONS (1)
  - Neuropathy peripheral [Not Recovered/Not Resolved]
